FAERS Safety Report 18579436 (Version 2)
Quarter: 2022Q2

REPORT INFORMATION
  Report Type: Spontaneous
  Country: CA (occurrence: CA)
  Receive Date: 20201204
  Receipt Date: 20220401
  Transmission Date: 20220721
  Serious: Yes (Hospitalization, Other)
  Sender: FDA-Public Use
  Company Number: CA-SA-2020SA341460

PATIENT
  Sex: Female

DRUGS (13)
  1. ARAVA [Suspect]
     Active Substance: LEFLUNOMIDE
     Indication: Hypertransaminasaemia
     Dosage: 10 MG, QD
     Route: 065
     Dates: start: 201712
  2. METHOTREXATE [Suspect]
     Active Substance: METHOTREXATE
     Indication: Hypertransaminasaemia
     Dosage: UNK
     Route: 065
     Dates: start: 201208, end: 201709
  3. CIMZIA [Suspect]
     Active Substance: CERTOLIZUMAB PEGOL
     Indication: Product used for unknown indication
     Dosage: 200 MG, QOW
     Route: 065
     Dates: start: 201901, end: 201905
  4. HUMIRA [Suspect]
     Active Substance: ADALIMUMAB
     Indication: Infection
     Dosage: 40 MG, QOW
     Route: 058
     Dates: start: 201906, end: 201908
  5. CELEBREX [Concomitant]
     Active Substance: CELECOXIB
     Indication: Product used for unknown indication
     Dosage: 200 MG
     Dates: start: 201512
  6. MEFENAMIC ACID [Concomitant]
     Active Substance: MEFENAMIC ACID
     Indication: Product used for unknown indication
     Dosage: UNK
  7. NAPROXEN SODIUM [Concomitant]
     Active Substance: NAPROXEN SODIUM
     Indication: Product used for unknown indication
     Dosage: UNK
     Dates: start: 2017
  8. PREDNISONE [Concomitant]
     Active Substance: PREDNISONE
     Indication: Product used for unknown indication
  9. CETIRIZINE HYDROCHLORIDE [Concomitant]
     Active Substance: CETIRIZINE HYDROCHLORIDE
     Indication: Product used for unknown indication
     Dosage: 20 MG
  10. CETIRIZINE HYDROCHLORIDE [Concomitant]
     Active Substance: CETIRIZINE HYDROCHLORIDE
     Dosage: 20 MG
  11. TYLENOL [Concomitant]
     Active Substance: ACETAMINOPHEN
     Indication: Product used for unknown indication
     Dosage: UNK
  12. TYLENOL ARTHRITIS PAIN [Concomitant]
     Active Substance: ACETAMINOPHEN
     Indication: Product used for unknown indication
  13. PLAQUENIL [Concomitant]
     Active Substance: HYDROXYCHLOROQUINE SULFATE
     Indication: Product used for unknown indication
     Dosage: 300 MG, QD
     Dates: start: 201312

REACTIONS (15)
  - Allergic oedema [Unknown]
  - Food allergy [Unknown]
  - Injury [Unknown]
  - Liver disorder [Unknown]
  - Pain [Unknown]
  - Peripheral swelling [Unknown]
  - Throat tightness [Unknown]
  - Photosensitivity reaction [Unknown]
  - Dermatitis allergic [Unknown]
  - Infection [Unknown]
  - Rash [Unknown]
  - Sepsis [Unknown]
  - Hypertransaminasaemia [Unknown]
  - Drug ineffective [Unknown]
  - Accident at work [Unknown]

NARRATIVE: CASE EVENT DATE: 20180101
